FAERS Safety Report 22333397 (Version 1)
Quarter: 2023Q2

REPORT INFORMATION
  Report Type: Spontaneous
  Country: None (occurrence: GB)
  Receive Date: 20230517
  Receipt Date: 20230517
  Transmission Date: 20230722
  Serious: Yes (Death, Life-Threatening, Hospitalization, Other)
  Sender: FDA-Public Use
  Company Number: GB-Canton Laboratories, LLC-2141600

PATIENT

DRUGS (2)
  1. NAPROSYN [Suspect]
     Active Substance: NAPROXEN
     Indication: Product used for unknown indication
     Dates: start: 20221230
  2. DICLOFENAC [Suspect]
     Active Substance: DICLOFENAC
     Dates: start: 20221214

REACTIONS (9)
  - Duodenal ulcer [Fatal]
  - Upper gastrointestinal haemorrhage [Fatal]
  - Product label issue [Fatal]
  - Product administration error [Fatal]
  - Loss of consciousness [Fatal]
  - Hypovolaemia [Fatal]
  - Hypotension [Fatal]
  - Cardiac arrest [Fatal]
  - Brain injury [Fatal]

NARRATIVE: CASE EVENT DATE: 20230112
